FAERS Safety Report 8952595 (Version 1)
Quarter: 2012Q4

REPORT INFORMATION
  Report Type: 
  Country: US (occurrence: US)
  Receive Date: 20121205
  Receipt Date: 20121205
  Transmission Date: 20130627
  Serious: No
  Sender: FDA-Public Use
  Company Number: US-VERTEX PHARMACEUTICALS INC.-2012-025418

PATIENT
  Sex: Male

DRUGS (1)
  1. INCIVEK [Suspect]
     Indication: HEPATITIS C
     Route: 048

REACTIONS (6)
  - Feeling hot [Unknown]
  - Thirst [Unknown]
  - Dysgeusia [Unknown]
  - Anorectal discomfort [Unknown]
  - Vomiting [Unknown]
  - Nausea [Unknown]
